FAERS Safety Report 15315547 (Version 1)
Quarter: 2018Q3

REPORT INFORMATION
  Report Type: Spontaneous
  Country: US (occurrence: US)
  Receive Date: 20180815
  Receipt Date: 20180815
  Transmission Date: 20181010
  Serious: Yes (Other)
  Sender: FDA-Public Use
  Company Number: None

PATIENT
  Age: 63 Year
  Sex: Female
  Weight: 126 kg

DRUGS (12)
  1. CARDIZEM [Concomitant]
     Active Substance: DILTIAZEM HYDROCHLORIDE
  2. BENICAR [Concomitant]
     Active Substance: OLMESARTAN MEDOXOMIL
  3. ASPIRIN. [Concomitant]
     Active Substance: ASPIRIN
  4. CRANBERRY. [Concomitant]
     Active Substance: CRANBERRY
  5. BUMETANIDE. [Concomitant]
     Active Substance: BUMETANIDE
  6. METOPROLOL. [Concomitant]
     Active Substance: METOPROLOL
  7. VITAMIN B12 + D3 [Concomitant]
  8. POTASSIUM CHLORIDE. [Concomitant]
     Active Substance: POTASSIUM CHLORIDE
  9. FISH OIL [Concomitant]
     Active Substance: FISH OIL
  10. POTASSIUM CL [Suspect]
     Active Substance: POTASSIUM CHLORIDE
     Indication: BLOOD POTASSIUM DECREASED
     Dosage: ?          QUANTITY:1 TABLET(S);?
     Route: 048
     Dates: start: 20170831, end: 20180812
  11. METFORMIN [Concomitant]
     Active Substance: METFORMIN HYDROCHLORIDE
  12. FLAXSEED [Concomitant]
     Active Substance: FLAX SEED

REACTIONS (7)
  - Skin lesion [None]
  - Blood glucose increased [None]
  - Product substitution issue [None]
  - Scar [None]
  - Product odour abnormal [None]
  - Pruritus [None]
  - Allergic reaction to excipient [None]

NARRATIVE: CASE EVENT DATE: 20180218
